FAERS Safety Report 22617367 (Version 1)
Quarter: 2023Q2

REPORT INFORMATION
  Report Type: Spontaneous
  Country: FR (occurrence: FR)
  Receive Date: 20230620
  Receipt Date: 20230620
  Transmission Date: 20230721
  Serious: Yes (Other)
  Sender: FDA-Public Use
  Company Number: FR-AFSSAPS-NT2023000550

PATIENT
  Age: 72 Year
  Sex: Female
  Weight: 55 kg

DRUGS (2)
  1. CIPROFLOXACIN [Suspect]
     Active Substance: CIPROFLOXACIN
     Indication: Bacteraemia
     Dosage: 750 MG2X/J DU 24 AU 28/02 PUIS 500 MG 2X/J DU 28/02 AU 08/03(750 MG TWICE A DAY FROM 02/24 TO 28 THE
     Route: 048
     Dates: start: 20230224, end: 20230308
  2. BACTRIM [Suspect]
     Active Substance: SULFAMETHOXAZOLE\TRIMETHOPRIM
     Indication: Bacteraemia
     Dosage: 2 DOSAGE FORM, ONCE A DAY (1-0-1)
     Route: 048
     Dates: start: 20230224, end: 20230306

REACTIONS (3)
  - Leukopenia [Unknown]
  - Neutropenia [Unknown]
  - Toxic skin eruption [Recovered/Resolved]

NARRATIVE: CASE EVENT DATE: 20230306
